FAERS Safety Report 10242435 (Version 2)
Quarter: 2014Q2

REPORT INFORMATION
  Report Type: Spontaneous
  Country: CH (occurrence: CH)
  Receive Date: 20140617
  Receipt Date: 20140617
  Transmission Date: 20141212
  Serious: Yes (Other)
  Sender: FDA-Public Use
  Company Number: PHHY2014CH004096

PATIENT
  Age: 59 Year
  Sex: Female

DRUGS (2)
  1. GILENYA [Suspect]
     Dosage: 0.5 MG, UNK
     Route: 048
     Dates: start: 201308
  2. METO ZEROK [Suspect]

REACTIONS (4)
  - Ventricular extrasystoles [Unknown]
  - Supraventricular extrasystoles [Unknown]
  - Palpitations [Unknown]
  - Hypoacusis [Unknown]
